FAERS Safety Report 6529018-X (Version None)
Quarter: 2009Q4

REPORT INFORMATION
  Report Type: 
  Country: None (occurrence: None)
  Receive Date: 20091229
  Receipt Date: 20091222
  Transmission Date: 20100525
  Serious: Yes (Hospitalization)
  Sender: FDA-Public Use
  Company Number: CLOF-1000083

PATIENT
  Age: 65 Year
  Sex: Male

DRUGS (10)
  1. EVOLTRA        (CLOFARABINE) [Suspect]
     Indication: ACUTE MYELOID LEUKAEMIA
     Dosage: 36 MG, QD, INTRAVENOUS; 36 MG/DAY, QD, INTRAVENOUS
     Route: 042
     Dates: start: 20070920, end: 20070920
  2. EVOLTRA        (CLOFARABINE) [Suspect]
     Indication: ACUTE MYELOID LEUKAEMIA
     Dosage: 36 MG, QD, INTRAVENOUS; 36 MG/DAY, QD, INTRAVENOUS
     Route: 042
     Dates: start: 20071029, end: 20071101
  3. EVOLTRA        (CLOFARABINE) [Suspect]
     Indication: ACUTE MYELOID LEUKAEMIA
     Dosage: 36 MG, QD, INTRAVENOUS; 36 MG/DAY, QD, INTRAVENOUS
     Route: 042
     Dates: start: 20090924, end: 20090924
  4. DAUNORUBICIN HCL [Suspect]
     Indication: ACUTE MYELOID LEUKAEMIA
     Dosage: 90 MG, QD, INTRAVENOUS
     Route: 042
     Dates: start: 20070920, end: 20070920
  5. DAUNORUBICIN HCL [Suspect]
     Indication: ACUTE MYELOID LEUKAEMIA
     Dosage: 90 MG, QD, INTRAVENOUS
     Route: 042
     Dates: start: 20070922, end: 20070922
  6. DAUNORUBICIN HCL [Suspect]
     Indication: ACUTE MYELOID LEUKAEMIA
     Dosage: 90 MG, QD, INTRAVENOUS
     Route: 042
     Dates: start: 20070924, end: 20070924
  7. DAUNORUBICIN HCL [Suspect]
     Indication: ACUTE MYELOID LEUKAEMIA
     Dosage: 90 MG, QD, INTRAVENOUS
     Route: 042
     Dates: start: 20071031, end: 20071031
  8. DAUNORUBICIN HCL [Suspect]
     Indication: ACUTE MYELOID LEUKAEMIA
     Dosage: 90 MG, QD, INTRAVENOUS
     Route: 042
     Dates: start: 20071102, end: 20071102
  9. DAUNORUBICIN HCL [Suspect]
     Indication: ACUTE MYELOID LEUKAEMIA
     Dosage: 90 MG, QD, INTRAVENOUS
     Route: 042
     Dates: start: 20071029
  10. MYLOTARG [Suspect]
     Indication: ACUTE MYELOID LEUKAEMIA
     Dosage: 5.5 MG, QD, INTRAVENOUS
     Route: 042
     Dates: start: 20070920, end: 20070920

REACTIONS (5)
  - ALANINE AMINOTRANSFERASE INCREASED [None]
  - BLAST CELLS PRESENT [None]
  - DEVICE RELATED INFECTION [None]
  - DRUG ADMINISTRATION ERROR [None]
  - PANCYTOPENIA [None]
